FAERS Safety Report 10072162 (Version 1)
Quarter: 2014Q2

REPORT INFORMATION
  Report Type: Report from Study
  Country: BR (occurrence: BR)
  Receive Date: 20140411
  Receipt Date: 20140411
  Transmission Date: 20141212
  Serious: Yes (Other)
  Sender: FDA-Public Use
  Company Number: PHHY2014BR041390

PATIENT
  Sex: Female
  Weight: 75 kg

DRUGS (7)
  1. DIOVAN [Suspect]
     Indication: CARDIAC DISORDER
     Dosage: 2 DF, (320 MG)
     Route: 048
     Dates: end: 20140317
  2. DIOVAN [Suspect]
     Dosage: 1 DF, (320 MG)
  3. DIOVAN [Suspect]
     Dosage: 2 DF, (320 MG)
  4. DIOVAN HCT [Suspect]
     Dosage: UNK UKN, UNK
  5. SOMALGIN [Concomitant]
     Indication: ANTICOAGULANT THERAPY
     Dosage: UNK UKN, UNK
  6. ROSULIB [Concomitant]
     Dosage: UNK UKN, UNK
  7. ANCORON [Concomitant]
     Dosage: UNK UKN, UNK

REACTIONS (7)
  - Diabetes mellitus [Recovering/Resolving]
  - Venous occlusion [Recovering/Resolving]
  - Blood cholesterol abnormal [Recovering/Resolving]
  - Cardiac disorder [Recovering/Resolving]
  - Renal disorder [Recovering/Resolving]
  - Fluid retention [Recovering/Resolving]
  - Hypertension [Recovering/Resolving]
